FAERS Safety Report 8440280-9 (Version None)
Quarter: 2012Q2

REPORT INFORMATION
  Report Type: 
  Country: None (occurrence: None)
  Receive Date: 20120615
  Receipt Date: 20120613
  Transmission Date: 20120825
  Serious: Yes (Other)
  Sender: FDA-Public Use
  Company Number: EG-ROCHE-1078378

PATIENT
  Sex: Male

DRUGS (1)
  1. MABTHERA [Suspect]
     Indication: VASCULITIS
     Route: 041

REACTIONS (3)
  - LOSS OF CONSCIOUSNESS [None]
  - RASH [None]
  - BLINDNESS TRANSIENT [None]
